FAERS Safety Report 8359970-1 (Version None)
Quarter: 2012Q2

REPORT INFORMATION
  Report Type: 
  Country: None (occurrence: None)
  Receive Date: 20120515
  Receipt Date: 20120503
  Transmission Date: 20120825
  Serious: Yes (Other)
  Sender: FDA-Public Use
  Company Number: US-JNJFOC-20120311610

PATIENT
  Sex: Male
  Weight: 77.11 kg

DRUGS (4)
  1. INVEGA SUSTENNA [Suspect]
     Indication: SCHIZOAFFECTIVE DISORDER
     Route: 030
     Dates: start: 20120228, end: 20120228
  2. INVEGA SUSTENNA [Suspect]
     Route: 030
     Dates: start: 20120308, end: 20120308
  3. INVEGA SUSTENNA [Suspect]
     Route: 030
     Dates: start: 20120308, end: 20120308
  4. INVEGA SUSTENNA [Suspect]
     Indication: BIPOLAR DISORDER
     Route: 030
     Dates: start: 20120228, end: 20120228

REACTIONS (6)
  - INAPPROPRIATE SCHEDULE OF DRUG ADMINISTRATION [None]
  - DRUG EFFECT DECREASED [None]
  - DEPRESSION [None]
  - DELUSION [None]
  - AGGRESSION [None]
  - DRUG DOSE OMISSION [None]
